FAERS Safety Report 7868380-2 (Version None)
Quarter: 2011Q4

REPORT INFORMATION
  Report Type: 
  Country: None (occurrence: None)
  Receive Date: 20111028
  Receipt Date: 20101229
  Transmission Date: 20120403
  Serious: No
  Sender: FDA-Public Use
  Company Number: US-AMGEN-USASP2010012315

PATIENT
  Age: 36 Year
  Sex: Female

DRUGS (1)
  1. ENBREL [Suspect]
     Indication: PSORIASIS
     Dates: start: 20100916, end: 20101227

REACTIONS (2)
  - TOOTH EXTRACTION [None]
  - POST PROCEDURAL INFECTION [None]
